FAERS Safety Report 17649342 (Version 1)
Quarter: 2020Q2

REPORT INFORMATION
  Report Type: Spontaneous
  Country: US (occurrence: US)
  Receive Date: 20200408
  Receipt Date: 20200408
  Transmission Date: 20200713
  Serious: No
  Sender: FDA-Public Use
  Company Number: US-BAUSCH-BL-2020-007811

PATIENT
  Age: 79 Year
  Sex: Female

DRUGS (1)
  1. POLYMYXIN B SULFATE AND TRIMETHOPRIM [Suspect]
     Active Substance: POLYMYXIN B SULFATE\TRIMETHOPRIM SULFATE
     Indication: BACTERIAL INFECTION
     Dosage: 1 DROP IN EACH EYE
     Route: 047
     Dates: start: 20200307, end: 20200307

REACTIONS (6)
  - Ocular hyperaemia [Not Recovered/Not Resolved]
  - Eyelid margin crusting [Unknown]
  - Eye irritation [Recovered/Resolved]
  - Influenza [Recovering/Resolving]
  - Eye pruritus [Recovering/Resolving]
  - Inappropriate schedule of product administration [Unknown]

NARRATIVE: CASE EVENT DATE: 202003
